FAERS Safety Report 8157567-X (Version None)
Quarter: 2012Q1

REPORT INFORMATION
  Report Type: 
  Country: None (occurrence: None)
  Receive Date: 20120222
  Receipt Date: 20110708
  Transmission Date: 20120608
  Serious: No
  Sender: FDA-Public Use
  Company Number: US-ASTRAZENECA-2011SE40832

PATIENT
  Age: 55 Year
  Sex: Female

DRUGS (1)
  1. TENORMIN [Suspect]
     Indication: ARRHYTHMIA
     Route: 048

REACTIONS (4)
  - DRUG INEFFECTIVE [None]
  - ARRHYTHMIA [None]
  - MALAISE [None]
  - CHEST DISCOMFORT [None]
